FAERS Safety Report 20199940 (Version 1)
Quarter: 2021Q4

REPORT INFORMATION
  Report Type: Spontaneous
  Country: US (occurrence: None)
  Receive Date: 20211217
  Receipt Date: 20211217
  Transmission Date: 20220304
  Serious: No
  Sender: FDA-Public Use
  Company Number: None

PATIENT
  Age: 40 Year
  Sex: Male

DRUGS (2)
  1. ENTECAVIR [Suspect]
     Active Substance: ENTECAVIR
     Indication: Hepatitis B
     Dosage: FREQUENCY : DAILY;?
     Route: 048
     Dates: start: 20210625
  2. TRULANCE [Concomitant]
     Active Substance: PLECANATIDE

REACTIONS (2)
  - Diarrhoea [None]
  - Product quality issue [None]

NARRATIVE: CASE EVENT DATE: 20211111
